FAERS Safety Report 21401137 (Version 2)
Quarter: 2022Q4

REPORT INFORMATION
  Report Type: Report from Study
  Country: US (occurrence: US)
  Receive Date: 20221003
  Receipt Date: 20221217
  Transmission Date: 20230113
  Serious: No
  Sender: FDA-Public Use
  Company Number: US-ABBVIE-4130548

PATIENT
  Age: 75 Year
  Sex: Male

DRUGS (1)
  1. CREON [Suspect]
     Active Substance: PANCRELIPASE AMYLASE\PANCRELIPASE LIPASE\PANCRELIPASE PROTEASE
     Indication: Product used for unknown indication
     Route: 048
     Dates: start: 201806

REACTIONS (7)
  - Rectal haemorrhage [Unknown]
  - Fatigue [Unknown]
  - Diarrhoea [Recovering/Resolving]
  - Drug ineffective [Unknown]
  - Abdominal pain [Unknown]
  - Abdominal distension [Unknown]
  - Frequent bowel movements [Unknown]

NARRATIVE: CASE EVENT DATE: 20210419
